FAERS Safety Report 23405021 (Version 1)
Quarter: 2024Q1

REPORT INFORMATION
  Report Type: Spontaneous
  Country: CH (occurrence: CH)
  Receive Date: 20240116
  Receipt Date: 20240116
  Transmission Date: 20240409
  Serious: Yes (Hospitalization, Other)
  Sender: FDA-Public Use
  Company Number: 24_00027292(0)

PATIENT
  Age: 17 Year
  Sex: Male

DRUGS (24)
  1. DEXMEDETOMIDINE HYDROCHLORIDE [Suspect]
     Active Substance: DEXMEDETOMIDINE HYDROCHLORIDE
     Indication: Agitation
     Dosage: PSE
     Route: 042
     Dates: start: 20231116, end: 20231121
  2. RIVOTRIL [Suspect]
     Active Substance: CLONAZEPAM
     Indication: Status epilepticus
     Dosage: IN TOTAL (0.2 MG)
     Route: 065
     Dates: start: 20231116, end: 20231116
  3. DIAZEPAM [Suspect]
     Active Substance: DIAZEPAM
     Indication: Status epilepticus
     Dosage: IN TOTAL (5 MG)
     Route: 054
     Dates: start: 20231116, end: 20231116
  4. KETAMINE [Suspect]
     Active Substance: KETAMINE
     Indication: Agitation
     Dosage: IN TOTAL (2 MG/KG)
     Route: 042
     Dates: start: 20231116, end: 20231116
  5. KETAMINE [Suspect]
     Active Substance: KETAMINE
     Dosage: IN TOTAL (1 MG/KG)
     Route: 042
     Dates: start: 20231117, end: 20231117
  6. KETAMINE [Suspect]
     Active Substance: KETAMINE
     Dosage: IN TOTAL (55 MG)
     Route: 042
     Dates: start: 20231117, end: 20231118
  7. KETAMINE [Suspect]
     Active Substance: KETAMINE
     Dosage: IN TOTAL (33 MG)
     Route: 042
     Dates: start: 20231118, end: 20231119
  8. KETAMINE [Suspect]
     Active Substance: KETAMINE
     Dosage: IN TOTAL (22 MG)
     Route: 042
     Dates: start: 20231121, end: 20231122
  9. KETAMINE [Suspect]
     Active Substance: KETAMINE
     Dosage: IN TOTAL (23 MG)
     Route: 042
     Dates: start: 20231122, end: 20231123
  10. KETAMINE [Suspect]
     Active Substance: KETAMINE
     Dosage: IN TOTAL (50 MG)
     Route: 042
     Dates: start: 20231123, end: 20231124
  11. KETAMINE [Suspect]
     Active Substance: KETAMINE
     Dosage: IN TOTAL (99 MG)
     Route: 042
     Dates: start: 20231124, end: 20231125
  12. KETAMINE [Suspect]
     Active Substance: KETAMINE
     Dosage: IN TOTAL (92.2 MG)
     Route: 042
     Dates: start: 20231125, end: 20231126
  13. KETAMINE [Suspect]
     Active Substance: KETAMINE
     Dosage: PSE; IN TOTAL (256.8 MG)
     Route: 042
     Dates: start: 20231126, end: 20231127
  14. KETAMINE [Suspect]
     Active Substance: KETAMINE
     Dosage: PSE ; IN TOTAL (80.19 MG)
     Route: 042
     Dates: start: 20231127, end: 20231127
  15. MORPHINE [Suspect]
     Active Substance: MORPHINE
     Indication: Product used for unknown indication
     Dosage: UNK
     Route: 065
     Dates: start: 20231120, end: 20231121
  16. FENTANYL [Suspect]
     Active Substance: FENTANYL\FENTANYL CITRATE
     Indication: Endotracheal intubation
     Dosage: (1 UG/KG,1 D)
     Route: 065
     Dates: start: 20231116, end: 20231116
  17. FENTANYL [Suspect]
     Active Substance: FENTANYL\FENTANYL CITRATE
     Dosage: (0.5 UG/KG,1 D)
     Route: 065
     Dates: start: 20231117, end: 20231117
  18. FENTANYL [Suspect]
     Active Substance: FENTANYL\FENTANYL CITRATE
     Dosage: (1 UG/KG,1 D)
     Route: 065
     Dates: start: 20231121, end: 20231121
  19. PROPOFOL [Suspect]
     Active Substance: PROPOFOL
     Indication: Endotracheal intubation
     Dosage: IN PSE ; IN TOTAL (2000 MG)
     Route: 042
     Dates: start: 20231116, end: 20231118
  20. PROPOFOL [Suspect]
     Active Substance: PROPOFOL
     Dosage: UNK, IN PSE
     Route: 042
     Dates: start: 20231118, end: 20231125
  21. CHLORAL HYDRATE [Suspect]
     Active Substance: CHLORAL HYDRATE
     Indication: Product used for unknown indication
     Dosage: UNK
     Route: 065
     Dates: start: 20231117, end: 20231119
  22. ROCURONIUM [Concomitant]
     Active Substance: ROCURONIUM BROMIDE
     Indication: Endotracheal intubation
     Dosage: 0.9 MG/KG, 1 D
     Route: 065
     Dates: start: 20231116, end: 20231116
  23. ROCURONIUM [Concomitant]
     Active Substance: ROCURONIUM BROMIDE
     Dosage: 1 MG/KG, 1 D
     Dates: start: 20231117, end: 20231117
  24. ROCURONIUM [Concomitant]
     Active Substance: ROCURONIUM BROMIDE
     Dosage: 1 MG/KG, 1 D
     Dates: start: 20231121, end: 20231121

REACTIONS (4)
  - Hypercapnic coma [Recovered/Resolved]
  - Respiratory arrest [Recovered/Resolved]
  - Respiratory failure [Recovered/Resolved]
  - Off label use [Unknown]

NARRATIVE: CASE EVENT DATE: 20231116
